FAERS Safety Report 6700000-2 (Version None)
Quarter: 2010Q2

REPORT INFORMATION
  Report Type: 
  Country: None (occurrence: None)
  Receive Date: 20100428
  Receipt Date: 20100421
  Transmission Date: 20101027
  Serious: Yes (Other)
  Sender: FDA-Public Use
  Company Number: US-SP-2010-02355

PATIENT
  Sex: Male

DRUGS (1)
  1. THERACYS [Suspect]
     Indication: BLADDER CANCER
     Route: 065

REACTIONS (4)
  - BOVINE TUBERCULOSIS [None]
  - EPIDIDYMAL TENDERNESS [None]
  - MASS [None]
  - ORCHITIS [None]
